FAERS Safety Report 6073955-X (Version None)
Quarter: 2009Q1

REPORT INFORMATION
  Report Type: 
  Country: None (occurrence: None)
  Receive Date: 20090211
  Receipt Date: 20090205
  Transmission Date: 20090719
  Serious: Yes (Hospitalization, Other)
  Sender: FDA-Public Use
  Company Number: PHHY2008BR33530

PATIENT
  Age: 74 Year
  Sex: Female

DRUGS (3)
  1. EXELON [Suspect]
     Indication: DEMENTIA ALZHEIMER'S TYPE
     Dosage: 1.5 MG, UNK
     Route: 048
     Dates: end: 20090117
  2. EXELON [Suspect]
     Dosage: 3 MG, QD
     Route: 048
     Dates: start: 20080101
  3. EXELON [Suspect]
     Dosage: 1.5 MG, BID
     Route: 048

REACTIONS (8)
  - CONVULSION [None]
  - DAYDREAMING [None]
  - DEPRESSION [None]
  - DROOLING [None]
  - FALL [None]
  - FEMUR FRACTURE [None]
  - MUSCULOSKELETAL STIFFNESS [None]
  - URINARY TRACT INFECTION [None]
